FAERS Safety Report 13674491 (Version 1)
Quarter: 2017Q2

REPORT INFORMATION
  Report Type: Spontaneous
  Country: CN (occurrence: CN)
  Receive Date: 20170621
  Receipt Date: 20170621
  Transmission Date: 20170830
  Serious: Yes (Hospitalization, Other)
  Sender: FDA-Public Use
  Company Number: CN-GILEAD-2017-0278700

PATIENT
  Age: 46 Year
  Sex: Male
  Weight: 68 kg

DRUGS (3)
  1. VIREAD [Suspect]
     Active Substance: TENOFOVIR DISOPROXIL FUMARATE
     Indication: HIV CARRIER
     Dosage: 300 MG, QD
     Route: 048
     Dates: start: 20170402, end: 20170418
  2. EFAVIRENZ [Suspect]
     Active Substance: EFAVIRENZ
     Indication: VIRAL INFECTION
     Dosage: 600 MG, QD
     Route: 048
     Dates: start: 20170402, end: 20170418
  3. LAMIVUDINE. [Suspect]
     Active Substance: LAMIVUDINE
     Indication: VIRAL INFECTION
     Dosage: 300 MG, QD
     Route: 048
     Dates: start: 20170402, end: 20170418

REACTIONS (2)
  - Pruritus [Unknown]
  - Liver injury [Unknown]

NARRATIVE: CASE EVENT DATE: 201704
